FAERS Safety Report 20037733 (Version 3)
Quarter: 2022Q1

REPORT INFORMATION
  Report Type: Other
  Country: AR (occurrence: AR)
  Receive Date: 20211105
  Receipt Date: 20220211
  Transmission Date: 20220423
  Serious: Yes (Other)
  Sender: FDA-Public Use
  Company Number: AR-002147023-PHHY2012AR038111

PATIENT
  Age: 52 Year
  Sex: Female

DRUGS (3)
  1. XOLAIR [Suspect]
     Active Substance: OMALIZUMAB
     Indication: Asthma
     Dosage: SOLUTION FOR INJECTION
     Route: 065
     Dates: start: 2011
  2. XOLAIR [Suspect]
     Active Substance: OMALIZUMAB
     Dosage: SOLUTION FOR INJECTION
     Route: 065
  3. XOLAIR [Suspect]
     Active Substance: OMALIZUMAB
     Dosage: SOLUTION FOR INJECTION
     Route: 058
     Dates: start: 20130711

REACTIONS (19)
  - Respiratory tract infection [Recovered/Resolved]
  - Bronchospasm [Recovering/Resolving]
  - Cough [Recovering/Resolving]
  - Oropharyngeal pain [Recovering/Resolving]
  - Nasopharyngitis [Recovering/Resolving]
  - Asthmatic crisis [Unknown]
  - Diabetes mellitus [Unknown]
  - Rhinorrhoea [Recovering/Resolving]
  - Chest pain [Recovering/Resolving]
  - Aphonia [Recovering/Resolving]
  - Fatigue [Unknown]
  - Somnolence [Unknown]
  - Anaemia [Unknown]
  - Thyroid disorder [Unknown]
  - Tachycardia [Unknown]
  - Insomnia [Unknown]
  - Palpitations [Unknown]
  - Asthma [Unknown]
  - Drug ineffective [Unknown]

NARRATIVE: CASE EVENT DATE: 20120401
